FAERS Safety Report 4948211-0 (Version None)
Quarter: 2006Q1

REPORT INFORMATION
  Report Type: 
  Country: None (occurrence: None)
  Receive Date: 20060313
  Receipt Date: 20060223
  Transmission Date: 20060701
  Serious: Yes (Hospitalization)
  Sender: FDA-Public Use
  Company Number: DSA_27820_2006

PATIENT
  Age: 63 Year
  Sex: Female

DRUGS (6)
  1. CARDIZEM CD [Suspect]
     Indication: ATRIAL FIBRILLATION
     Dosage: 240 MG Q DAY PO
     Route: 048
     Dates: start: 20060212
  2. CARDIZEM [Suspect]
     Indication: ATRIAL FIBRILLATION
     Dosage: DF IV
     Route: 042
     Dates: start: 20060210, end: 20060212
  3. ALBUTEROL [Concomitant]
  4. ADVAIR DISKUS 100/50 [Concomitant]
  5. ATACAMD    /01349502/ [Concomitant]
  6. ASPIRIN [Concomitant]

REACTIONS (5)
  - ATRIAL FIBRILLATION [None]
  - MALAISE [None]
  - OEDEMA PERIPHERAL [None]
  - PALPITATIONS [None]
  - PULMONARY CONGESTION [None]
